FAERS Safety Report 16969682 (Version 1)
Quarter: 2019Q4

REPORT INFORMATION
  Report Type: Spontaneous
  Country: GR (occurrence: GR)
  Receive Date: 20191029
  Receipt Date: 20191029
  Transmission Date: 20200122
  Serious: Yes (Other)
  Sender: FDA-Public Use
  Company Number: GR-MYLANLABS-2019M1101523

PATIENT
  Age: 54 Year
  Sex: Female

DRUGS (1)
  1. AMLODIPINE [Suspect]
     Active Substance: AMLODIPINE BESYLATE
     Indication: HYPERTENSION
     Dosage: UNK
     Route: 065

REACTIONS (8)
  - Blood parathyroid hormone increased [Not Recovered/Not Resolved]
  - Hyperparathyroidism primary [Unknown]
  - Parathyroid tumour benign [Unknown]
  - Malaise [Unknown]
  - Fatigue [Unknown]
  - Emotional disorder [Unknown]
  - Osteoporosis [Unknown]
  - Nephrolithiasis [Unknown]
